FAERS Safety Report 4598769-9 (Version None)
Quarter: 2005Q1

REPORT INFORMATION
  Report Type: 
  Country: None (occurrence: None)
  Receive Date: 20050304
  Receipt Date: 20050301
  Transmission Date: 20050727
  Serious: Yes (Other)
  Sender: FDA-Public Use
  Company Number: PHBS2005JP03121

PATIENT

DRUGS (1)
  1. MELLERIL [Suspect]
     Dosage: 10 MG, BID
     Route: 048

REACTIONS (4)
  - EATING DISORDER [None]
  - NEUROLEPTIC MALIGNANT SYNDROME [None]
  - PYREXIA [None]
  - TREMOR [None]
